FAERS Safety Report 4881797-3 (Version None)
Quarter: 2006Q1

REPORT INFORMATION
  Report Type: 
  Country: None (occurrence: None)
  Receive Date: 20060112
  Receipt Date: 20051230
  Transmission Date: 20060701
  Serious: Yes (Other)
  Sender: FDA-Public Use
  Company Number: 2006002321

PATIENT
  Sex: Female
  Weight: 78.0187 kg

DRUGS (6)
  1. NEURONTIN [Suspect]
     Indication: NEUROPATHY
     Dosage: 100 MG (100 MG, 1 IN 1 D), UNKNOWN
     Dates: start: 20050301
  2. GABAPENTIN [Suspect]
     Indication: NEUROPATHY
     Dosage: 100 MG (100 MG, 1 IN 1 D), UNKNOWN
     Dates: start: 20051001
  3. LEVOTHYROXINE SODIUM [Concomitant]
  4. MORPHINE [Concomitant]
  5. VITAMINS (VITAMINS) [Concomitant]
  6. AMBIEN [Concomitant]

REACTIONS (4)
  - DRUG EFFECT DECREASED [None]
  - DRUG INEFFECTIVE [None]
  - LICHEN PLANUS [None]
  - PAIN [None]
